FAERS Safety Report 12456803 (Version 1)
Quarter: 2016Q2

REPORT INFORMATION
  Report Type: Report from Study
  Country: US (occurrence: US)
  Receive Date: 20160610
  Receipt Date: 20160610
  Transmission Date: 20160815
  Serious: Yes (Other)
  Sender: FDA-Public Use
  Company Number: US-KADMON PHARMACEUTICALS, LLC-KAD201606-002121

PATIENT
  Age: 55 Year
  Sex: Male
  Weight: 113.4 kg

DRUGS (12)
  1. RIBAVIRIN. [Suspect]
     Active Substance: RIBAVIRIN
     Indication: HEPATITIS C
     Dosage: TABLET; 600 MG IN THE AM AND 800 MG IN THE PM
     Route: 048
     Dates: start: 20160407, end: 20160414
  2. VIEKIRA PAK [Suspect]
     Active Substance: DASABUVIR\OMBITASVIR\PARITAPREVIR\RITONAVIR
     Indication: HEPATITIS C
     Dosage: TABLET
     Route: 048
     Dates: start: 20160407, end: 20160505
  3. ATENOLOL. [Concomitant]
     Active Substance: ATENOLOL
     Indication: PAIN
  4. TONAL [Concomitant]
  5. FLEXERIL [Concomitant]
     Active Substance: CYCLOBENZAPRINE HYDROCHLORIDE
     Indication: PAIN
  6. TRAMADOL. [Concomitant]
     Active Substance: TRAMADOL
     Indication: PAIN
  7. ASPIRIN. [Concomitant]
     Active Substance: ASPIRIN
     Indication: PAIN
  8. RIBAVIRIN. [Suspect]
     Active Substance: RIBAVIRIN
     Dosage: TABLET; IN THE AM AND IN THE PM
     Route: 048
     Dates: start: 20160414
  9. NEURONTIN [Concomitant]
     Active Substance: GABAPENTIN
     Indication: PAIN
  10. ULTRAM [Concomitant]
     Active Substance: TRAMADOL HYDROCHLORIDE
     Indication: PAIN
  11. TRIMAL [Concomitant]
  12. ATENOLOL. [Concomitant]
     Active Substance: ATENOLOL
     Indication: PAIN

REACTIONS (26)
  - Gait disturbance [Unknown]
  - Headache [Recovered/Resolved]
  - Paraesthesia [Unknown]
  - Peripheral swelling [Unknown]
  - Drug intolerance [Unknown]
  - Anxiety [Recovered/Resolved]
  - Bowel movement irregularity [Unknown]
  - Swelling face [Unknown]
  - Abdominal distension [Recovered/Resolved]
  - Contusion [Unknown]
  - Malaise [Unknown]
  - Pain [Recovered/Resolved]
  - Pain [Unknown]
  - Liver injury [Unknown]
  - Gastric haemorrhage [Unknown]
  - Abasia [Unknown]
  - Insomnia [Unknown]
  - Burning sensation [Unknown]
  - Suicidal ideation [Unknown]
  - Palpitations [Unknown]
  - Mobility decreased [Unknown]
  - Sunburn [Unknown]
  - Fatigue [Unknown]
  - Depression [Unknown]
  - Gait disturbance [Unknown]
  - Faeces discoloured [Unknown]

NARRATIVE: CASE EVENT DATE: 20160410
